FAERS Safety Report 12277838 (Version 1)
Quarter: 2016Q2

REPORT INFORMATION
  Report Type: Spontaneous
  Country: US (occurrence: US)
  Receive Date: 20160418
  Receipt Date: 20160418
  Transmission Date: 20160815
  Serious: Yes (Other)
  Sender: FDA-Public Use
  Company Number: US-TEVA-652311USA

PATIENT
  Sex: Male
  Weight: 96.25 kg

DRUGS (1)
  1. WARFARIN [Suspect]
     Active Substance: WARFARIN
     Indication: ANTICOAGULANT THERAPY
     Dosage: 5MG PILL SUNDAY, TUESDAY, THURSDAY, AND SATURDAY AND 7.5MG MONDAY, WEDNESDAY, FRIDAY
     Route: 065

REACTIONS (1)
  - Cerebrovascular accident [Unknown]
